FAERS Safety Report 7166768-9 (Version None)
Quarter: 2010Q4

REPORT INFORMATION
  Report Type: 
  Country: None (occurrence: None)
  Receive Date: 20101216
  Receipt Date: 20101208
  Transmission Date: 20110411
  Serious: Yes (Life-Threatening, Other)
  Sender: FDA-Public Use
  Company Number: JP-ROCHE-747780

PATIENT
  Age: 77 Year
  Sex: Female
  Weight: 44 kg

DRUGS (3)
  1. XELODA [Suspect]
     Indication: COLON CANCER
     Route: 048
     Dates: start: 20101029, end: 20101112
  2. AVASTIN [Suspect]
     Indication: COLON CANCER
     Dosage: DOSAGE IS UNCERTAIN.
     Route: 041
  3. ELPLAT [Concomitant]
     Dosage: DOSAGE IS UNCERTAIN.
     Route: 041

REACTIONS (5)
  - BONE MARROW FAILURE [None]
  - DIARRHOEA [None]
  - RESPIRATORY TRACT HAEMORRHAGE [None]
  - SPUTUM RETENTION [None]
  - STOMATITIS [None]
